FAERS Safety Report 8955569 (Version 1)
Quarter: 2012Q4

REPORT INFORMATION
  Report Type: Report from Study
  Country: BE (occurrence: BE)
  Receive Date: 20121210
  Receipt Date: 20121210
  Transmission Date: 20130627
  Serious: Yes (Hospitalization, Other)
  Sender: FDA-Public Use
  Company Number: BE-BIOGENIDEC-2012BI057310

PATIENT
  Age: 46 Year
  Sex: Female

DRUGS (13)
  1. TYSABRI [Suspect]
     Indication: RELAPSING-REMITTING MULTIPLE SCLEROSIS
     Route: 042
     Dates: start: 20120207, end: 20121113
  2. AMANTADINE [Concomitant]
     Indication: FATIGUE
     Route: 048
     Dates: start: 20110106
  3. BACLOFEN [Concomitant]
     Indication: MUSCLE SPASTICITY
     Route: 048
  4. VITAMIN B [Concomitant]
     Indication: NEURALGIA
     Route: 048
     Dates: start: 20081113
  5. DAFALGAN [Concomitant]
     Indication: PAIN
  6. VITAMIN D [Concomitant]
     Indication: VITAMIN D DEFICIENCY
     Dates: start: 20120403
  7. DICLOFENAC [Concomitant]
     Indication: PAIN
  8. BISOPROLOL [Concomitant]
     Indication: HYPERTENSION
  9. PREGABALIN [Concomitant]
     Indication: NEURALGIA
  10. MIRTAZAPINE [Concomitant]
     Indication: PAIN
     Dates: start: 20071122
  11. MIRTAZAPINE [Concomitant]
     Indication: INSOMNIA
     Dates: start: 20071122
  12. CLONAZEPAM [Concomitant]
     Indication: MUSCLE SPASTICITY
     Dates: start: 20110106
  13. VEINOFYTOL [Concomitant]
     Indication: VENOUS INSUFFICIENCY
     Dates: start: 20120529

REACTIONS (1)
  - Meningioma surgery [Recovered/Resolved]
